FAERS Safety Report 18325412 (Version 2)
Quarter: 2020Q4

REPORT INFORMATION
  Report Type: Spontaneous
  Country: US (occurrence: US)
  Receive Date: 20200929
  Receipt Date: 20201020
  Transmission Date: 20210113
  Serious: Yes (Disabling, Other)
  Sender: FDA-Public Use
  Company Number: US-PURDUE-USA-2020-0164128

PATIENT
  Sex: Male

DRUGS (11)
  1. OXYCODONE HYDROCHLORIDE (SIMILAR TO NDA 22-272) [Suspect]
     Active Substance: OXYCODONE HYDROCHLORIDE
     Indication: PRODUCT USED FOR UNKNOWN INDICATION
     Dosage: UNK
     Route: 048
     Dates: start: 20051001, end: 2016
  2. DILAUDID [Suspect]
     Active Substance: HYDROMORPHONE HYDROCHLORIDE
     Indication: PRODUCT USED FOR UNKNOWN INDICATION
     Dosage: UNK
     Route: 048
     Dates: start: 20051001, end: 2016
  3. VICODIN [Suspect]
     Active Substance: ACETAMINOPHEN\HYDROCODONE BITARTRATE
     Indication: PRODUCT USED FOR UNKNOWN INDICATION
     Dosage: UNK
     Route: 048
     Dates: start: 20051001
  4. OXYMORPHONE [Suspect]
     Active Substance: OXYMORPHONE
     Dosage: 20 MG, UNK
     Route: 048
  5. DOXYCYCLINE HYCLATE. [Concomitant]
     Active Substance: DOXYCYCLINE HYCLATE
     Indication: PRODUCT USED FOR UNKNOWN INDICATION
     Dosage: 100 MG, BID
     Route: 048
  6. OXYCODONE HCL TABLETS (RHODES 91-490) [Suspect]
     Active Substance: OXYCODONE HYDROCHLORIDE
     Indication: BREAKTHROUGH PAIN
     Dosage: 30 MG, Q4H PRN
     Route: 048
  7. OXYMORPHONE [Suspect]
     Active Substance: OXYMORPHONE
     Indication: PRODUCT USED FOR UNKNOWN INDICATION
     Dosage: 30 MG, QID
     Route: 048
     Dates: start: 20051001, end: 2016
  8. OXYMORPHONE [Suspect]
     Active Substance: OXYMORPHONE
     Dosage: 40 MG, UNK
     Route: 048
  9. OPANA [Suspect]
     Active Substance: OXYMORPHONE HYDROCHLORIDE
     Dosage: 10 MG, BID
     Route: 048
  10. OXYIR [Suspect]
     Active Substance: OXYCODONE HYDROCHLORIDE
     Indication: PRODUCT USED FOR UNKNOWN INDICATION
     Dosage: 20 MG, Q4H
     Route: 048
  11. OPANA [Suspect]
     Active Substance: OXYMORPHONE HYDROCHLORIDE
     Indication: PAIN
     Dosage: 40 MG, BID
     Route: 048

REACTIONS (20)
  - Drug dependence [Unknown]
  - Suicidal ideation [Unknown]
  - Constipation [Unknown]
  - Back pain [Unknown]
  - Weight increased [Unknown]
  - Pain [Unknown]
  - Fall [Unknown]
  - Hyperhidrosis [Unknown]
  - Post-traumatic epilepsy [Unknown]
  - Hepatitis C virus test positive [Unknown]
  - Neck pain [Unknown]
  - Meralgia paraesthetica [Unknown]
  - Arthritis [Unknown]
  - Ligament sprain [Unknown]
  - Overdose [Unknown]
  - Tremor [Unknown]
  - Intervertebral disc protrusion [Unknown]
  - Unevaluable event [Unknown]
  - Hypoaesthesia [Unknown]
  - Sexual dysfunction [Unknown]

NARRATIVE: CASE EVENT DATE: 2006
